FAERS Safety Report 7260264-6 (Version None)
Quarter: 2011Q1

REPORT INFORMATION
  Report Type: 
  Country: None (occurrence: None)
  Receive Date: 20110130
  Receipt Date: 20100907
  Transmission Date: 20110831
  Serious: No
  Sender: FDA-Public Use
  Company Number: US-ABBOTT-10P-163-0670009-00

PATIENT
  Sex: Female
  Weight: 106.69 kg

DRUGS (4)
  1. VERAPAMIL [Concomitant]
     Indication: BLOOD PRESSURE
  2. PREDNISONE [Concomitant]
     Indication: PRODUCT USED FOR UNKNOWN INDICATION
  3. METHOTREXATE [Concomitant]
     Indication: PRODUCT USED FOR UNKNOWN INDICATION
     Dosage: .6-.8 CC /WK
  4. HUMIRA [Suspect]
     Indication: RHEUMATOID ARTHRITIS
     Dates: start: 20100101, end: 20100101

REACTIONS (1)
  - DRUG EFFECT DECREASED [None]
